FAERS Safety Report 16917554 (Version 23)
Quarter: 2024Q2

REPORT INFORMATION
  Report Type: Report from Study
  Country: US (occurrence: US)
  Receive Date: 20191015
  Receipt Date: 20240613
  Transmission Date: 20240715
  Serious: Yes (Life-Threatening, Hospitalization, Disabling, Other)
  Sender: FDA-Public Use
  Company Number: US-SA-2019SA043635

PATIENT
  Age: 39 Year
  Sex: Female
  Weight: 115 kg

DRUGS (46)
  1. ALEMTUZUMAB [Suspect]
     Active Substance: ALEMTUZUMAB
     Indication: Relapsing multiple sclerosis
     Dosage: 12 MG, QD
     Route: 041
     Dates: start: 20170911, end: 20170915
  2. ALEMTUZUMAB [Suspect]
     Active Substance: ALEMTUZUMAB
     Dosage: 12 MG, QD
     Route: 041
     Dates: start: 20180917, end: 20180919
  3. LYRICA [Concomitant]
     Active Substance: PREGABALIN
     Indication: Multiple sclerosis
     Dosage: 600 MG
     Route: 048
     Dates: start: 201612
  4. LYRICA [Concomitant]
     Active Substance: PREGABALIN
     Dosage: 200 MG, TID
  5. CYMBALTA [Concomitant]
     Active Substance: DULOXETINE HYDROCHLORIDE
     Indication: Insomnia
     Dosage: 60 MG, QD
     Dates: start: 201802
  6. ZYPREXA [Concomitant]
     Active Substance: OLANZAPINE
     Indication: Migraine
     Dosage: 10 MG, QD
     Route: 048
     Dates: start: 201802
  7. BUSPAR [Concomitant]
     Active Substance: BUSPIRONE HYDROCHLORIDE
     Indication: Anxiety
     Dosage: 15 MG
     Route: 048
     Dates: start: 201802
  8. BUSPAR [Concomitant]
     Active Substance: BUSPIRONE HYDROCHLORIDE
     Dosage: 7.5 MG, BID
  9. SYMBICORT [Concomitant]
     Active Substance: BUDESONIDE\FORMOTEROL FUMARATE DIHYDRATE
     Indication: Asthma
     Dosage: 1 PUFF
     Route: 050
     Dates: start: 201802
  10. PROAIR HFA [Concomitant]
     Active Substance: ALBUTEROL SULFATE
     Indication: Asthma
     Dosage: 2 PUFF
     Route: 050
     Dates: start: 201802
  11. DANTROLENE [Concomitant]
     Active Substance: DANTROLENE
     Indication: Muscle spasms
     Dosage: 400 MG
     Route: 048
     Dates: start: 201806
  12. DANTROLENE [Concomitant]
     Active Substance: DANTROLENE
     Dosage: 100 MG, QID
  13. RITALIN [Concomitant]
     Active Substance: METHYLPHENIDATE HYDROCHLORIDE
     Indication: Multiple sclerosis
     Dosage: 20 MG, BID
     Route: 048
     Dates: start: 20170809
  14. RITALIN [Concomitant]
     Active Substance: METHYLPHENIDATE HYDROCHLORIDE
     Dosage: 40 MG, UNK
     Route: 048
     Dates: start: 201803
  15. MS CONTIN [Concomitant]
     Active Substance: MORPHINE SULFATE
     Indication: Multiple sclerosis
     Dosage: 60 MG
     Route: 048
     Dates: start: 20171218
  16. LIDODERM [Concomitant]
     Active Substance: LIDOCAINE
     Indication: Multiple sclerosis
     Dosage: 5 % (V/V)
     Route: 061
     Dates: start: 201712
  17. ACETAMINOPHEN\CHLORZOXAZONE [Concomitant]
     Active Substance: ACETAMINOPHEN\CHLORZOXAZONE
     Indication: Muscle spasms
     Dosage: 1600 MG
     Route: 048
     Dates: start: 201711
  18. INSULIN B [Concomitant]
     Dosage: UNK UNK, UNK
     Route: 065
  19. ACYCLOVIR [Concomitant]
     Active Substance: ACYCLOVIR
     Indication: Prophylaxis
     Dosage: 400 MG
     Route: 048
     Dates: start: 20180917
  20. SULFAMETHOXAZOLE AND TRIMETHOPRIM [Concomitant]
     Active Substance: SULFAMETHOXAZOLE\TRIMETHOPRIM
     Indication: Prophylaxis
     Dosage: 800 MG
     Route: 048
     Dates: start: 20180917, end: 20181005
  21. ACETAMINOPHEN [Concomitant]
     Active Substance: ACETAMINOPHEN
     Indication: Prophylaxis
     Dosage: 1000 MG, UNK
     Route: 048
     Dates: start: 20180917, end: 20180919
  22. BENADRYL [Concomitant]
     Active Substance: DIPHENHYDRAMINE HYDROCHLORIDE
     Indication: Prophylaxis
     Dosage: 25 MG, UNK
     Route: 048
     Dates: start: 20180917, end: 20180919
  23. TRAZODONE [Concomitant]
     Active Substance: TRAZODONE HYDROCHLORIDE
     Indication: Insomnia
     Dosage: 100 MG, HS
     Route: 048
     Dates: start: 201802
  24. NICOTINE [Concomitant]
     Active Substance: NICOTINE
     Dosage: 21 MG NICOTINE PATCH
     Route: 065
  25. BACLOFEN [Concomitant]
     Active Substance: BACLOFEN
     Indication: Multiple sclerosis
     Dosage: 80 MG
     Route: 048
     Dates: start: 2009
  26. CLINDAMYCIN [Concomitant]
     Active Substance: CLINDAMYCIN
     Indication: Cellulitis
     Dosage: 300 MG, TID
     Route: 048
     Dates: start: 20181228, end: 20190106
  27. MARINOL [Concomitant]
     Active Substance: DRONABINOL
     Indication: Multiple sclerosis
     Dosage: 5 MG, TID
  28. MARINOL [Concomitant]
     Active Substance: DRONABINOL
     Dosage: 15 MG
     Route: 048
     Dates: start: 20180920, end: 201811
  29. MARINOL [Concomitant]
     Active Substance: DRONABINOL
     Dosage: 20 MG
     Route: 048
     Dates: start: 201812
  30. MORPHINE SULFATE [Concomitant]
     Active Substance: MORPHINE SULFATE
     Dosage: 30 MG, BID
  31. METHYLPREDNISOLONE [Concomitant]
     Active Substance: METHYLPREDNISOLONE
     Dosage: 20 MG, BID
     Route: 048
  32. FLORASTOR [SACCHAROMYCES BOULARDII] [Concomitant]
     Dosage: 300 MG, TID
     Route: 048
  33. PREDNISONE [Concomitant]
     Active Substance: PREDNISONE
     Indication: Prophylaxis
     Dosage: 60 MG, QD
     Route: 048
     Dates: start: 20190626
  34. PREDNISONE [Concomitant]
     Active Substance: PREDNISONE
     Indication: Muscle spasticity
     Dosage: 100 MG
     Route: 048
     Dates: start: 20190629, end: 20190701
  35. PREDNISONE [Concomitant]
     Active Substance: PREDNISONE
     Indication: Immune thrombocytopenia
     Dosage: 60 MG
     Route: 048
     Dates: start: 20190710, end: 20190713
  36. PREDNISONE [Concomitant]
     Active Substance: PREDNISONE
     Dosage: 40 MG
     Route: 048
     Dates: start: 20190714, end: 20190714
  37. PREDNISONE [Concomitant]
     Active Substance: PREDNISONE
     Dosage: 20 MG
     Route: 048
     Dates: start: 20190717, end: 20190723
  38. PREDNISONE [Concomitant]
     Active Substance: PREDNISONE
     Dosage: 10 MG
     Route: 048
     Dates: start: 20190724, end: 20190730
  39. PREDNISONE [Concomitant]
     Active Substance: PREDNISONE
     Dosage: 40 MG
     Route: 048
     Dates: start: 20190818
  40. PREDNISONE [Concomitant]
     Active Substance: PREDNISONE
     Dosage: 60 UNK
     Route: 048
     Dates: start: 20180920, end: 20180921
  41. PREDNISONE [Concomitant]
     Active Substance: PREDNISONE
     Dosage: 40 UNK
     Route: 048
     Dates: start: 20180922, end: 20180923
  42. PREDNISONE [Concomitant]
     Active Substance: PREDNISONE
     Dosage: 40 UNK
     Route: 048
     Dates: start: 20180924, end: 20180925
  43. PREDNISONE [Concomitant]
     Active Substance: PREDNISONE
     Dosage: 60 MG
     Route: 048
     Dates: start: 20190710, end: 20190713
  44. CIPROFLOXACIN [Concomitant]
     Active Substance: CIPROFLOXACIN
     Dosage: 500 MG, BID
     Route: 048
     Dates: start: 20181228, end: 20181228
  45. BACTRIM [Concomitant]
     Active Substance: SULFAMETHOXAZOLE\TRIMETHOPRIM
     Dosage: 60 MG, QD
  46. LATUDA [Concomitant]
     Active Substance: LURASIDONE HYDROCHLORIDE
     Indication: Migraine
     Dosage: 40 MG
     Route: 048
     Dates: start: 20190301

REACTIONS (10)
  - Hepatitis B [Unknown]
  - Immune thrombocytopenia [Unknown]
  - Drug abuse [Unknown]
  - Infected skin ulcer [Recovered/Resolved]
  - Cellulitis [Recovered/Resolved]
  - Thrombocytopenia [Recovered/Resolved with Sequelae]
  - Skin ulcer [Recovered/Resolved]
  - Platelet count decreased [Recovered/Resolved]
  - Hypotension [Recovered/Resolved]
  - Hepatitis C [Not Recovered/Not Resolved]

NARRATIVE: CASE EVENT DATE: 20181101
